FAERS Safety Report 9013731 (Version 1)
Quarter: 2013Q1

REPORT INFORMATION
  Report Type: Spontaneous
  Country: US (occurrence: None)
  Receive Date: 20130108
  Receipt Date: 20130108
  Transmission Date: 20140127
  Serious: No
  Sender: FDA-Public Use
  Company Number: None

PATIENT
  Sex: Female

DRUGS (2)
  1. SIMPONI [Suspect]
     Route: 058
     Dates: start: 20120801
  2. METHOTREXATE [Suspect]
     Dosage: 25 (MG (1ML) QWEEK SUBCUTANEOUSLY

REACTIONS (3)
  - Trichorrhexis [None]
  - Alopecia [None]
  - Alopecia [None]
